FAERS Safety Report 25456248 (Version 1)
Quarter: 2025Q2

REPORT INFORMATION
  Report Type: Spontaneous
  Country: PL (occurrence: PL)
  Receive Date: 20250619
  Receipt Date: 20250619
  Transmission Date: 20250716
  Serious: Yes (Other)
  Sender: BAYER HEALTHCARE PHARMACEUTICALS INC.
  Company Number: PL-BAYER-2025A078931

PATIENT
  Sex: Male

DRUGS (4)
  1. NUBEQA [Suspect]
     Active Substance: DAROLUTAMIDE
     Dates: start: 2025
  2. DOCETAXEL [Suspect]
     Active Substance: DOCETAXEL
     Dosage: 75 MG, Q3WK
     Dates: start: 20241202
  3. DOCETAXEL [Suspect]
     Active Substance: DOCETAXEL
     Dates: end: 20250402
  4. DEGARELIX [Suspect]
     Active Substance: DEGARELIX
     Dates: start: 20241001

REACTIONS (3)
  - Granulocytopenia [None]
  - Leukopenia [None]
  - Metastases to lung [None]

NARRATIVE: CASE EVENT DATE: 20250605
